FAERS Safety Report 9152865 (Version 4)
Quarter: 2014Q2

REPORT INFORMATION
  Report Type: Report from Study
  Country: CA (occurrence: CA)
  Receive Date: 20130309
  Receipt Date: 20140402
  Transmission Date: 20141212
  Serious: Yes (Hospitalization)
  Sender: FDA-Public Use
  Company Number: CA-US-EMD SERONO, INC.-7198075

PATIENT
  Age: 60 Year
  Sex: Male
  Weight: 69 kg

DRUGS (4)
  1. REBIF [Suspect]
     Indication: SECONDARY PROGRESSIVE MULTIPLE SCLEROSIS
     Route: 058
     Dates: end: 20121128
  2. REBIF [Suspect]
     Route: 058
     Dates: start: 20121128, end: 201305
  3. REBIF [Suspect]
     Route: 058
     Dates: start: 20010316
  4. REBIF [Suspect]
     Route: 058
     Dates: start: 20130603

REACTIONS (12)
  - Skin cancer [Unknown]
  - Wound [Recovered/Resolved]
  - Injection site infection [Unknown]
  - Multiple sclerosis relapse [Unknown]
  - Drug ineffective [Unknown]
  - Malaise [Unknown]
  - Unevaluable event [Unknown]
  - Skin lesion [Unknown]
  - Skin discolouration [Unknown]
  - Pyrexia [Unknown]
  - Off label use [Unknown]
  - Inadequate aseptic technique in use of product [Unknown]
